FAERS Safety Report 6552453-0 (Version None)
Quarter: 2010Q1

REPORT INFORMATION
  Report Type: 
  Country: None (occurrence: None)
  Receive Date: 20100126
  Receipt Date: 20100115
  Transmission Date: 20100710
  Serious: Yes (Hospitalization, Other)
  Sender: FDA-Public Use
  Company Number: PHHY2010JP00693

PATIENT
  Age: 16 Year
  Sex: Male

DRUGS (2)
  1. SANDIMMUNE [Suspect]
     Indication: COLITIS ULCERATIVE
     Dosage: UNK
     Route: 042
  2. PREDNISOLONE [Concomitant]

REACTIONS (9)
  - ABDOMINAL SYMPTOM [None]
  - COLITIS ULCERATIVE [None]
  - DRUG INEFFECTIVE [None]
  - GASTROINTESTINAL SURGERY [None]
  - GINGIVAL HYPERPLASIA [None]
  - GINGIVAL SWELLING [None]
  - INTESTINAL STOMA [None]
  - ORAL PAIN [None]
  - STOMATITIS [None]
